FAERS Safety Report 4802744-6 (Version None)
Quarter: 2005Q4

REPORT INFORMATION
  Report Type: 
  Country: None (occurrence: None)
  Receive Date: 20051019
  Receipt Date: 20051007
  Transmission Date: 20060501
  Serious: Yes (Other)
  Sender: FDA-Public Use
  Company Number: US-SP-2005-02025

PATIENT
  Age: 20 Year
  Sex: Female

DRUGS (1)
  1. TUBERSOL [Suspect]
     Route: 023
     Dates: start: 20051006

REACTIONS (7)
  - BURNING SENSATION [None]
  - CHEST DISCOMFORT [None]
  - CONSCIOUSNESS FLUCTUATING [None]
  - HEART RATE INCREASED [None]
  - PAIN IN EXTREMITY [None]
  - URTICARIA [None]
  - VOMITING [None]
